FAERS Safety Report 10173085 (Version 2)
Quarter: 2014Q2

REPORT INFORMATION
  Report Type: Spontaneous
  Country: US (occurrence: None)
  Receive Date: 20140416
  Receipt Date: 20140604
  Transmission Date: 20141212
  Serious: No
  Sender: FDA-Public Use
  Company Number: 163-POMAL-14020817

PATIENT
  Age: 69 Year
  Sex: Female
  Weight: 72.6 kg

DRUGS (20)
  1. POMALYST [Suspect]
     Indication: PLASMA CELL MYELOMA
     Dosage: 4 MG, 14 IN 21 D, PO
     Route: 048
     Dates: start: 20131213
  2. CALCIUM CARBONATE (CALCIUM CARBONATE) [Concomitant]
  3. CO Q10 (UBIDECARENONE) [Concomitant]
  4. DIPHENHYDRAMINE HCL (DIPHENHYDRAMIDE HYDROCHLORIDE) [Concomitant]
  5. ECOTRIN (ACETYLSALICYLIC ACID) [Concomitant]
  6. MAGNESIUM (MAGNESIUM) [Concomitant]
  7. MULTIVITAMINS (MULTIVITAMINS) [Concomitant]
  8. PRILOSEC (OMEPRAZOLE) [Concomitant]
  9. VITAMIN D (ERGOCALCIFEROL) [Concomitant]
  10. ZOLPIDEM TARTRATE (ZOLPIDEM TARTRATE) [Concomitant]
  11. KLOR-CON (POTASSIUM CHLORIDE) [Concomitant]
  12. CHLORHEXIDINE GLUCONATE (CHLORHEXIDINE GLUCONATE) [Concomitant]
  13. ACETAMINOPHEN-CODEINE 3 (PANADEINE CO) [Concomitant]
  14. TOPROL XL (METOPROLOL SUCCINATE) [Concomitant]
  15. PRAVASTATIN SODIUM (PRAVASTATIN SODIUM) [Concomitant]
  16. DEXAMETHASONE (DEXAMETHASONE) [Concomitant]
  17. AMOXICILLIN (AMOXICILLIN) [Concomitant]
  18. OMEPRAZOLE  (OMEPRAZOLE) [Concomitant]
  19. OXYCODONE HCL (OXYCODONE HYDROCHLORIDE) [Concomitant]
  20. LOSARTAN HCTZ (HYZAAR) [Concomitant]

REACTIONS (2)
  - Blood pressure decreased [None]
  - Dehydration [None]
